FAERS Safety Report 20451467 (Version 2)
Quarter: 2025Q2

REPORT INFORMATION
  Report Type: Spontaneous
  Country: IL (occurrence: IL)
  Receive Date: 20220209
  Receipt Date: 20250502
  Transmission Date: 20250717
  Serious: Yes (Hospitalization, Other)
  Sender: BRISTOL MYERS SQUIBB
  Company Number: IL-BRISTOL-MYERS SQUIBB COMPANY-BMS-2022-017677

PATIENT
  Age: 69 Year
  Sex: Female

DRUGS (1)
  1. OPDIVO [Suspect]
     Active Substance: NIVOLUMAB
     Indication: Non-small cell lung cancer
     Dosage: 165 MILLIGRAM, Q2WK
     Route: 042
     Dates: start: 201711

REACTIONS (1)
  - Chronic rhinosinusitis with nasal polyps [Recovering/Resolving]

NARRATIVE: CASE EVENT DATE: 20200101
